FAERS Safety Report 5227063-8 (Version None)
Quarter: 2007Q1

REPORT INFORMATION
  Report Type: 
  Country: None (occurrence: None)
  Receive Date: 20070201
  Receipt Date: 20070201
  Transmission Date: 20070707
  Serious: Yes (Hospitalization)
  Sender: FDA-Public Use
  Company Number: None

PATIENT
  Sex: Male
  Weight: 88.4514 kg

DRUGS (8)
  1. MEGACE [Suspect]
     Indication: WEIGHT DECREASED
     Dosage: 800 MG Q DAY
     Dates: start: 20061129
  2. CISPLATIN [Concomitant]
  3. VP-16 CHEMOTHERAPY [Concomitant]
  4. TAGAMET [Concomitant]
  5. PROCHLOPERAZINE MALEATE [Concomitant]
  6. ANZEMET [Concomitant]
  7. OMNICEF [Concomitant]
  8. DOSY-CAPS [Concomitant]

REACTIONS (2)
  - DEHYDRATION [None]
  - PANCYTOPENIA [None]
